FAERS Safety Report 18936165 (Version 1)
Quarter: 2021Q1

REPORT INFORMATION
  Report Type: Spontaneous
  Country: US (occurrence: US)
  Receive Date: 20210225
  Receipt Date: 20210225
  Transmission Date: 20210420
  Serious: No
  Sender: FDA-Public Use
  Company Number: US-GLAXOSMITHKLINE-US2021AMR047440

PATIENT
  Age: 79 Year
  Sex: Female
  Weight: 56.7 kg

DRUGS (2)
  1. ARNUITY ELLIPTA [Suspect]
     Active Substance: FLUTICASONE FUROATE
     Indication: ASTHMA
     Dosage: 1 PUFF(S)
     Route: 055
  2. PFIZER?BIONTECH COVID?19 VACCINE [Suspect]
     Active Substance: TOZINAMERAN
     Indication: COVID-19
     Dosage: UNK
     Dates: start: 20210202

REACTIONS (9)
  - Malaise [Recovered/Resolved]
  - Nausea [Recovered/Resolved]
  - Feeling hot [Recovered/Resolved]
  - Nervousness [Recovered/Resolved]
  - Feeling abnormal [Unknown]
  - Treatment noncompliance [Unknown]
  - Chills [Recovering/Resolving]
  - Hyperhidrosis [Recovered/Resolved with Sequelae]
  - Hunger [Recovered/Resolved]

NARRATIVE: CASE EVENT DATE: 20210204
